FAERS Safety Report 9508706 (Version 2)
Quarter: 2013Q4

REPORT INFORMATION
  Report Type: Spontaneous
  Country: RU (occurrence: RU)
  Receive Date: 20130909
  Receipt Date: 20131220
  Transmission Date: 20140711
  Serious: Yes (Other)
  Sender: FDA-Public Use
  Company Number: RU-VIIV HEALTHCARE LIMITED-B0915817A

PATIENT
  Age: 1 Year
  Sex: Male

DRUGS (3)
  1. EPIVIR [Suspect]
     Indication: HIV INFECTION
     Route: 065
     Dates: start: 19990419, end: 20020327
  2. RETROVIR [Suspect]
     Indication: HIV INFECTION
     Route: 065
     Dates: start: 19990419, end: 20020327
  3. NORVIR [Concomitant]
     Indication: HIV INFECTION
     Dates: start: 200002, end: 20020327

REACTIONS (1)
  - Drug ineffective [Not Recovered/Not Resolved]
